FAERS Safety Report 6066715-7 (Version None)
Quarter: 2009Q1

REPORT INFORMATION
  Report Type: 
  Country: None (occurrence: None)
  Receive Date: 20090205
  Receipt Date: 20080423
  Transmission Date: 20090719
  Serious: No
  Sender: FDA-Public Use
  Company Number: US-ABBOTT-08P-163-0448797-00

PATIENT
  Age: 80 Year
  Sex: Female
  Weight: 99.426 kg

DRUGS (2)
  1. VICODIN [Suspect]
     Indication: BACK PAIN
     Dosage: ONCE EVERY 6 HOURS AS NEEDED
     Route: 048
  2. PROVACOL [Concomitant]
     Indication: BLOOD CHOLESTEROL
     Route: 048
     Dates: start: 19980101

REACTIONS (2)
  - PRURITUS [None]
  - RASH [None]
